FAERS Safety Report 4784336-0 (Version None)
Quarter: 2005Q3

REPORT INFORMATION
  Report Type: 
  Country: None (occurrence: None)
  Receive Date: 20050929
  Receipt Date: 20050929
  Transmission Date: 20060218
  Serious: No
  Sender: FDA-Public Use
  Company Number: None

PATIENT
  Age: 55 Year
  Sex: Male
  Weight: 88.4514 kg

DRUGS (2)
  1. UNISOM SLEEPGELS [Suspect]
     Indication: INSOMNIA
  2. UNISOM SLEEPTABS [Suspect]
     Indication: INSOMNIA

REACTIONS (1)
  - MEDICATION ERROR [None]
